FAERS Safety Report 10057244 (Version 4)
Quarter: 2015Q1

REPORT INFORMATION
  Report Type: Report from Study
  Country: JP (occurrence: JP)
  Receive Date: 20140403
  Receipt Date: 20150120
  Transmission Date: 20150720
  Serious: Yes (Hospitalization)
  Sender: FDA-Public Use
  Company Number: JP-PFIZER INC-2014090516

PATIENT
  Age: 56 Year
  Sex: Male
  Weight: 77 kg

DRUGS (13)
  1. FENTANYL. [Concomitant]
     Active Substance: FENTANYL
     Indication: ANALGESIC THERAPY
     Dosage: 0.5 MG, 1X/DAY
     Route: 042
  2. FOSPHENYTOIN [Concomitant]
     Active Substance: FOSPHENYTOIN\FOSPHENYTOIN SODIUM
     Indication: SEIZURE
     Dosage: 750 MG, 1X/DAY
     Route: 042
     Dates: start: 20140223, end: 20140223
  3. LASIX [Concomitant]
     Active Substance: FUROSEMIDE
     Indication: DIURETIC THERAPY
     Dosage: 20 MG, 1X/DAY
     Route: 042
     Dates: start: 20140225, end: 20140226
  4. SODIUM PICOSULFATE [Concomitant]
     Active Substance: SODIUM PICOSULFATE
     Indication: CONSTIPATION
     Dosage: UNK
     Route: 048
  5. MIYA-BM [Concomitant]
     Active Substance: CLOSTRIDIUM BUTYRICUM SPORES STRAIN M-55
     Indication: CONSTIPATION
     Dosage: 3 G, 3X/DAY
     Route: 048
  6. PROPOFOL. [Concomitant]
     Active Substance: PROPOFOL
     Indication: ANALGESIC THERAPY
     Dosage: 500 MG, 1X/DAY
     Route: 042
  7. DEPAKENE [Concomitant]
     Active Substance: VALPROIC ACID
     Indication: EPILEPSY
     Dosage: 1200 MG, 3X/DAY
     Route: 048
  8. KEPPRA [Concomitant]
     Active Substance: LEVETIRACETAM
     Indication: EPILEPSY
     Dosage: 1000 MG, 2X/DAY
     Route: 048
  9. GASLON [Concomitant]
     Active Substance: IRSOGLADINE MALEATE
     Indication: GASTRITIS PROPHYLAXIS
     Dosage: 4 MG, 1X/DAY
     Route: 048
  10. ROHYPNOL [Concomitant]
     Active Substance: FLUNITRAZEPAM
     Indication: INSOMNIA
     Dosage: 1 MG, 1X/DAY
     Route: 048
  11. AZUNOL [Concomitant]
     Active Substance: SODIUM GUALENATE
     Indication: DERMATITIS
     Dosage: UNK; 3X/DAY
     Route: 003
     Dates: start: 20140223
  12. ARASENA A [Concomitant]
     Active Substance: VIDARABINE
     Indication: ORAL HERPES
     Dosage: UNK; 1X/DAY
     Route: 003
     Dates: start: 20140225
  13. UNASYN [Suspect]
     Active Substance: AMPICILLIN SODIUM\SULBACTAM SODIUM
     Indication: PNEUMONIA
     Dosage: 3 G, 4X/DAY
     Route: 041
     Dates: start: 20140221, end: 20140226

REACTIONS (1)
  - Pancreatitis [Recovered/Resolved]

NARRATIVE: CASE EVENT DATE: 20140226
